FAERS Safety Report 5030538-8 (Version None)
Quarter: 2006Q2

REPORT INFORMATION
  Report Type: 
  Country: None (occurrence: None)
  Receive Date: 20060615
  Receipt Date: 20060607
  Transmission Date: 20061013
  Serious: Yes (Other)
  Sender: FDA-Public Use
  Company Number: 2006072902

PATIENT
  Sex: 0

DRUGS (2)
  1. DILANTIN [Suspect]
     Indication: EPILEPSY
  2. LAMICTAL [Suspect]
     Indication: EPILEPSY

REACTIONS (2)
  - CONDITION AGGRAVATED [None]
  - CONVULSION [None]
